FAERS Safety Report 5225692-9 (Version None)
Quarter: 2007Q1

REPORT INFORMATION
  Report Type: 
  Country: None (occurrence: None)
  Receive Date: 20070129
  Receipt Date: 20070116
  Transmission Date: 20070707
  Serious: Yes (Death, Other)
  Sender: FDA-Public Use
  Company Number: 2007-00072

PATIENT
  Age: 63 Year
  Sex: Female

DRUGS (6)
  1. VELCADE [Suspect]
     Indication: MULTIPLE MYELOMA
     Dosage: 1.40 MG; 1.80 MG
     Dates: start: 20061218, end: 20061221
  2. VELCADE [Suspect]
     Indication: MULTIPLE MYELOMA
     Dosage: 1.40 MG; 1.80 MG
     Dates: start: 20061225, end: 20061228
  3. ITRACONAZOLE [Concomitant]
  4. DEXAMETHASONE [Concomitant]
  5. MAGNESIUM OXIDE (MAGNESIUM OXIDE) [Concomitant]
  6. MALFA (MAGNESIUM HYDROXIDE, ALUMINIUM HYDROXIDE GEL) [Concomitant]

REACTIONS (7)
  - BLOOD LACTATE DEHYDROGENASE INCREASED [None]
  - CONDITION AGGRAVATED [None]
  - DIARRHOEA [None]
  - ILEUS [None]
  - INTERSTITIAL LUNG DISEASE [None]
  - PNEUMOCYSTIS JIROVECI PNEUMONIA [None]
  - PULMONARY MYCOSIS [None]
